FAERS Safety Report 7443562-2 (Version None)
Quarter: 2011Q2

REPORT INFORMATION
  Report Type: 
  Country: None (occurrence: None)
  Receive Date: 20110428
  Receipt Date: 20110425
  Transmission Date: 20111010
  Serious: Yes (Hospitalization)
  Sender: FDA-Public Use
  Company Number: ES-PFIZER INC-2011089123

PATIENT
  Age: 13 Year
  Sex: Male

DRUGS (3)
  1. TAZOCEL [Suspect]
     Indication: PERITONITIS
     Dosage: 4.5 G, 3X/DAY
     Route: 042
     Dates: start: 20110127, end: 20110210
  2. ZYVOX [Suspect]
     Indication: PERITONITIS
     Dosage: 600 MG, 2X/DAY
     Route: 042
     Dates: start: 20110127, end: 20110210
  3. FLUCONAZOLE [Suspect]
     Indication: PERITONITIS
     Dosage: 400 MG, 1X/DAY
     Route: 042
     Dates: start: 20110127, end: 20110210

REACTIONS (4)
  - EOSINOPHILIA [None]
  - LIVER INJURY [None]
  - DRUG RASH WITH EOSINOPHILIA AND SYSTEMIC SYMPTOMS [None]
  - RASH MACULO-PAPULAR [None]
